FAERS Safety Report 4571456-9 (Version None)
Quarter: 2005Q1

REPORT INFORMATION
  Report Type: 
  Country: None (occurrence: None)
  Receive Date: 20050207
  Receipt Date: 20050125
  Transmission Date: 20050727
  Serious: Yes (Other)
  Sender: FDA-Public Use
  Company Number: US-JNJFOC-20041102611

PATIENT
  Sex: Female
  Weight: 77.57 kg

DRUGS (5)
  1. REMICADE [Suspect]
     Dosage: 3 VIALS
     Route: 042
  2. REMICADE [Suspect]
     Route: 042
  3. REMICADE [Suspect]
     Indication: RHEUMATOID ARTHRITIS
     Route: 042
  4. METHOTREXATE [Concomitant]
     Indication: RHEUMATOID ARTHRITIS
     Dosage: 3 OR 4 YEARS
  5. SYNTHROID [Concomitant]
     Dosage: 10 YEARS

REACTIONS (2)
  - HYPERTHYROIDISM [None]
  - VENTRICULAR EXTRASYSTOLES [None]
